FAERS Safety Report 25356555 (Version 1)
Quarter: 2025Q2

REPORT INFORMATION
  Report Type: Spontaneous
  Country: FR (occurrence: FR)
  Receive Date: 20250526
  Receipt Date: 20250526
  Transmission Date: 20250716
  Serious: Yes (Other)
  Sender: SANOFI AVENTIS
  Company Number: None

PATIENT
  Age: 9 Year
  Sex: Female
  Weight: 20 kg

DRUGS (8)
  1. CEFAZOLIN [Suspect]
     Active Substance: CEFAZOLIN
     Indication: Staphylococcal bacteraemia
     Dosage: 3 G, QW
     Route: 042
     Dates: start: 20250220, end: 20250224
  2. CEFAZOLIN [Suspect]
     Active Substance: CEFAZOLIN
     Dosage: 3 G, QW
     Route: 042
     Dates: start: 20250227, end: 20250329
  3. RIFAMPIN [Suspect]
     Active Substance: RIFAMPIN
     Indication: Venous thrombosis
     Dosage: 300 MG, QD
     Route: 042
     Dates: start: 20250225, end: 20250320
  4. CALCIPARINE [Concomitant]
     Active Substance: HEPARIN CALCIUM
     Route: 058
  5. WARFARIN SODIUM [Concomitant]
     Active Substance: WARFARIN SODIUM
  6. SODIUM CHLORIDE [Concomitant]
     Active Substance: SODIUM CHLORIDE
  7. CALCIUM CARBONATE [Concomitant]
     Active Substance: CALCIUM CARBONATE
  8. ALFACALCIDOL [Concomitant]
     Active Substance: ALFACALCIDOL

REACTIONS (1)
  - Liver injury [Recovering/Resolving]

NARRATIVE: CASE EVENT DATE: 20250327
